FAERS Safety Report 5731550-3 (Version None)
Quarter: 2008Q2

REPORT INFORMATION
  Report Type: 
  Country: None (occurrence: None)
  Receive Date: 20080508
  Receipt Date: 20080228
  Transmission Date: 20081010
  Serious: No
  Sender: FDA-Public Use
  Company Number: FR-PFIZER INC-2006044957

PATIENT
  Sex: Male
  Weight: 62.5 kg

DRUGS (3)
  1. SUTENT [Suspect]
     Indication: METASTATIC RENAL CELL CARCINOMA
     Route: 048
  2. SOLUPRED [Concomitant]
     Route: 048
     Dates: start: 20060220, end: 20060320
  3. EFFERALGAN CODEINE [Concomitant]
     Route: 048

REACTIONS (1)
  - NO ADVERSE EVENT [None]
